FAERS Safety Report 6130587-2 (Version None)
Quarter: 2009Q1

REPORT INFORMATION
  Report Type: 
  Country: None (occurrence: None)
  Receive Date: 20090323
  Receipt Date: 20090308
  Transmission Date: 20090719
  Serious: Yes (Other)
  Sender: FDA-Public Use
  Company Number: 2007S1006879

PATIENT
  Age: 51 Year
  Sex: Female
  Weight: 73.9363 kg

DRUGS (7)
  1. PHOSPHOSODA FLAVOR NOT SPECIFIED [Suspect]
     Indication: COLONOSCOPY
     Dosage: 90 ML; TOTAL; PO
     Route: 048
     Dates: start: 20060305, end: 20060306
  2. AMOXICILLIN [Concomitant]
  3. CLARITHROMYCIN [Concomitant]
  4. OMEPRAZOLE [Concomitant]
  5. IRON [Concomitant]
  6. PRILOSEC [Concomitant]
  7. BIOXIN [Concomitant]

REACTIONS (3)
  - RENAL FAILURE [None]
  - RENAL INJURY [None]
  - TUBULOINTERSTITIAL NEPHRITIS [None]
